FAERS Safety Report 6462798-0 (Version None)
Quarter: 2009Q4

REPORT INFORMATION
  Report Type: 
  Country: None (occurrence: None)
  Receive Date: 20091130
  Receipt Date: 20091019
  Transmission Date: 20100525
  Serious: No
  Sender: FDA-Public Use
  Company Number: US-AMGEN-KDL364823

PATIENT
  Sex: Female
  Weight: 56.8 kg

DRUGS (5)
  1. ENBREL [Suspect]
     Indication: RHEUMATOID ARTHRITIS
     Route: 058
     Dates: start: 20090824, end: 20090914
  2. METHOTREXATE [Concomitant]
  3. LEVOTHROID [Concomitant]
     Dates: start: 20000101
  4. BIESTROGEN [Concomitant]
     Dates: start: 20040101
  5. PROGESTERONE [Concomitant]

REACTIONS (1)
  - UPPER RESPIRATORY TRACT INFECTION [None]
